FAERS Safety Report 20079246 (Version 1)
Quarter: 2021Q4

REPORT INFORMATION
  Report Type: Spontaneous
  Country: DE (occurrence: DE)
  Receive Date: 20211117
  Receipt Date: 20211117
  Transmission Date: 20220303
  Serious: Yes (Other)
  Sender: FDA-Public Use
  Company Number: None

PATIENT
  Age: 88 Year
  Sex: Female

DRUGS (12)
  1. ORNITHINE [Concomitant]
     Active Substance: ORNITHINE
     Dosage: ()
  2. MORPHINE [Concomitant]
     Active Substance: MORPHINE
     Dosage: ()
  3. OMEPRAZOLE [Concomitant]
     Active Substance: OMEPRAZOLE
     Indication: Chronic gastritis
     Dosage: 20 MILLIGRAM DAILY; ()
  4. RIFAXIMIN [Concomitant]
     Active Substance: RIFAXIMIN
     Dosage: ()
  5. TORSEMIDE [Concomitant]
     Active Substance: TORSEMIDE
     Indication: Chronic kidney disease
     Dosage: 5 MILLIGRAM DAILY; ()
  6. L-Aspartate [Concomitant]
     Dosage: ()
  7. HEPARIN [Concomitant]
     Active Substance: HEPARIN SODIUM
     Dosage: ()
  8. ENOXAPARIN [Suspect]
     Active Substance: ENOXAPARIN
     Dosage: ()
     Route: 065
  9. RAMIPRIL [Concomitant]
     Active Substance: RAMIPRIL
     Indication: Hypertension
     Dosage: 5 MILLIGRAM DAILY; ()
  10. PIPERACILLIN AND TAZOBACTAM [Suspect]
     Active Substance: PIPERACILLIN SODIUM\TAZOBACTAM SODIUM
     Dosage: ()
     Route: 065
  11. PREDNISOLONE [Concomitant]
     Active Substance: PREDNISOLONE
     Dosage: ()
  12. DIMETHICONE [Concomitant]
     Active Substance: DIMETHICONE
     Dosage: ()

REACTIONS (2)
  - Hepatotoxicity [Unknown]
  - Hepatic failure [Unknown]
